FAERS Safety Report 10855794 (Version 1)
Quarter: 2015Q1

REPORT INFORMATION
  Report Type: Spontaneous
  Country: US (occurrence: None)
  Receive Date: 20150218
  Receipt Date: 20150218
  Transmission Date: 20150721
  Serious: No
  Sender: FDA-Public Use
  Company Number: None

PATIENT
  Age: 32 Year
  Sex: Female
  Weight: 56.7 kg

DRUGS (4)
  1. VALIUM [Concomitant]
     Active Substance: DIAZEPAM
  2. OASIS TEARS [Suspect]
     Active Substance: GLYCERIN
     Indication: DRY EYE
     Dosage: FOUR TIMES DAILY
     Dates: start: 20150202, end: 20150216
  3. TRAZODONE [Concomitant]
     Active Substance: TRAZODONE HYDROCHLORIDE
  4. ESTROGEN [Concomitant]
     Active Substance: ESTRONE\SUS SCROFA OVARY

REACTIONS (4)
  - Pain in extremity [None]
  - Pain [None]
  - Gait disturbance [None]
  - Arthralgia [None]

NARRATIVE: CASE EVENT DATE: 20150202
